FAERS Safety Report 5242703-5 (Version None)
Quarter: 2007Q1

REPORT INFORMATION
  Report Type: 
  Country: None (occurrence: None)
  Receive Date: 20070221
  Receipt Date: 20070216
  Transmission Date: 20070707
  Serious: Yes (Hospitalization, Disabling, Other)
  Sender: FDA-Public Use
  Company Number: US-GLAXOSMITHKLINE-A0630235A

PATIENT
  Age: 76 Year
  Sex: Female
  Weight: 108.6 kg

DRUGS (3)
  1. COREG [Suspect]
     Indication: HYPERTENSION
     Route: 048
     Dates: start: 20061001, end: 20061101
  2. TOPROL-XL [Suspect]
     Indication: DRUG USE FOR UNKNOWN INDICATION
     Dosage: 50MG PER DAY
     Route: 048
     Dates: start: 19950101, end: 20061001
  3. ATIVAN [Concomitant]
     Dosage: .5MG AS REQUIRED
     Route: 048
     Dates: start: 20031201

REACTIONS (4)
  - FLUID RETENTION [None]
  - OEDEMA PERIPHERAL [None]
  - PALPITATIONS [None]
  - TREMOR [None]
